FAERS Safety Report 17800642 (Version 1)
Quarter: 2020Q2

REPORT INFORMATION
  Report Type: Spontaneous
  Country: IN (occurrence: TH)
  Receive Date: 20200518
  Receipt Date: 20200518
  Transmission Date: 20200714
  Serious: Yes (Life-Threatening, Hospitalization, Other)
  Sender: FDA-Public Use
  Company Number: TH-ELI_LILLY_AND_COMPANY-TH202005004609

PATIENT
  Age: 21 Year
  Sex: Female

DRUGS (1)
  1. FLUOXETINE HYDROCHLORIDE. [Suspect]
     Active Substance: FLUOXETINE HYDROCHLORIDE
     Indication: SUICIDE ATTEMPT
     Dosage: INGESTED A HANDFUL AMOUNT OF FLUOXETINE (20 MG PER CAPSULE)
     Route: 048

REACTIONS (13)
  - Agitation [Recovered/Resolved]
  - Intentional overdose [Recovered/Resolved]
  - Stiff tongue [Recovered/Resolved]
  - Sinus tachycardia [Recovered/Resolved]
  - Hyperreflexia [Recovered/Resolved]
  - Hypokalaemia [Recovered/Resolved]
  - Musculoskeletal stiffness [Recovered/Resolved]
  - Blepharospasm [Recovered/Resolved]
  - Hypomagnesaemia [Recovered/Resolved]
  - Electrocardiogram QT prolonged [Recovered/Resolved]
  - Dystonia [Recovered/Resolved]
  - Speech disorder [Recovered/Resolved]
  - Nausea [Recovered/Resolved]
